FAERS Safety Report 9753852 (Version 2)
Quarter: 2015Q3

REPORT INFORMATION
  Report Type: Spontaneous
  Country: US (occurrence: US)
  Receive Date: 20131213
  Receipt Date: 20150805
  Transmission Date: 20151125
  Serious: No
  Sender: FDA-Public Use
  Company Number: US-GILEAD-2010-0027670

PATIENT
  Age: 80 Year
  Sex: Female
  Weight: 77.11 kg

DRUGS (9)
  1. REVATIO [Concomitant]
     Active Substance: SILDENAFIL CITRATE
  2. METOPROLOL [Concomitant]
     Active Substance: METOPROLOL
  3. OXYGEN. [Concomitant]
     Active Substance: OXYGEN
  4. ACIPHEX [Concomitant]
     Active Substance: RABEPRAZOLE SODIUM
  5. MELOXICAM. [Concomitant]
     Active Substance: MELOXICAM
  6. HYDROCHLOROTHIAZIDE. [Concomitant]
     Active Substance: HYDROCHLOROTHIAZIDE
  7. LETAIRIS [Suspect]
     Active Substance: AMBRISENTAN
     Indication: PULMONARY ARTERIAL HYPERTENSION
     Route: 048
     Dates: start: 20090731
  8. SIMVASTATIN. [Concomitant]
     Active Substance: SIMVASTATIN
  9. BENAZEPRIL [Concomitant]
     Active Substance: BENAZEPRIL HYDROCHLORIDE

REACTIONS (1)
  - Peripheral swelling [Unknown]
